FAERS Safety Report 7388417-7 (Version None)
Quarter: 2011Q2

REPORT INFORMATION
  Report Type: 
  Country: None (occurrence: None)
  Receive Date: 20110401
  Receipt Date: 20110322
  Transmission Date: 20111010
  Serious: Yes (Other)
  Sender: FDA-Public Use
  Company Number: PHHY2011IL24363

PATIENT
  Age: 13 Year
  Sex: Male

DRUGS (3)
  1. CARBAMAZEPINE [Suspect]
     Indication: BENIGN ROLANDIC EPILEPSY
     Dosage: UNK
  2. CEPHALEXIN [Concomitant]
     Dosage: UNK
  3. ANTIHISTAMINES [Concomitant]
     Dosage: UNK

REACTIONS (13)
  - OCULAR HYPERAEMIA [None]
  - PARAKERATOSIS [None]
  - MOUTH ULCERATION [None]
  - DERMATITIS [None]
  - RASH PAPULAR [None]
  - VITILIGO [None]
  - PALLOR [None]
  - LYMPHOCYTIC INFILTRATION [None]
  - NODULE [None]
  - EYE IRRITATION [None]
  - PITYRIASIS LICHENOIDES ET VARIOLIFORMIS ACUTA [None]
  - ACHROMOTRICHIA ACQUIRED [None]
  - SKIN LESION [None]
